FAERS Safety Report 8561444-X (Version None)
Quarter: 2012Q3

REPORT INFORMATION
  Report Type: 
  Country: None (occurrence: None)
  Receive Date: 20120802
  Receipt Date: 20120724
  Transmission Date: 20120928
  Serious: Yes (Hospitalization)
  Sender: FDA-Public Use
  Company Number: FR-GLAXOSMITHKLINE-B0816714A

PATIENT
  Sex: Female

DRUGS (9)
  1. NEXIUM [Concomitant]
     Route: 048
     Dates: end: 20120625
  2. ZYPREXA [Suspect]
     Indication: MAJOR DEPRESSION
     Dosage: 10MG PER DAY
     Route: 048
     Dates: start: 20120628, end: 20120716
  3. ANAFRANIL [Suspect]
     Indication: MAJOR DEPRESSION
     Dosage: 150MG PER DAY
     Route: 048
     Dates: start: 20120622
  4. ZOFRAN [Suspect]
     Indication: VOMITING
     Dosage: 8MG WEEKLY
     Route: 048
     Dates: start: 20120201, end: 20120716
  5. AVASTIN [Suspect]
     Indication: BREAST CANCER
     Dosage: 25MGML WEEKLY
     Route: 042
     Dates: start: 20120201, end: 20120716
  6. CORTICOID [Concomitant]
     Route: 048
  7. MIDODRINE HYDROCHLORIDE [Suspect]
     Indication: ORTHOSTATIC HYPOTENSION
     Route: 048
     Dates: start: 20120622, end: 20120716
  8. TAXOL [Suspect]
     Indication: BREAST CANCER RECURRENT
     Route: 042
     Dates: start: 20120201, end: 20120716
  9. CHLORPROMAZINE HCL [Suspect]
     Indication: MAJOR DEPRESSION
     Dosage: 200DROP PER DAY
     Route: 048
     Dates: start: 20120620, end: 20120628

REACTIONS (3)
  - CHOLESTASIS [None]
  - HEPATOCELLULAR INJURY [None]
  - URTICARIA [None]
